FAERS Safety Report 19454698 (Version 1)
Quarter: 2021Q2

REPORT INFORMATION
  Report Type: Report from Study
  Country: CA (occurrence: CA)
  Receive Date: 20210623
  Receipt Date: 20210623
  Transmission Date: 20210717
  Serious: Yes (Death, Other)
  Sender: FDA-Public Use
  Company Number: CA-MYLANLABS-2021M1005547

PATIENT
  Age: 51 Year
  Sex: Female

DRUGS (3)
  1. CLOZAPINE. [Suspect]
     Active Substance: CLOZAPINE
     Indication: SCHIZOPHRENIA
     Dosage: UNK
     Dates: start: 201209
  2. CLOZAPINE. [Suspect]
     Active Substance: CLOZAPINE
     Dosage: 475 MILLIGRAM, HS
     Route: 048
     Dates: start: 20111019, end: 202012
  3. ATIVAN [Concomitant]
     Active Substance: LORAZEPAM
     Dosage: 1?10 MG QD PIN

REACTIONS (2)
  - Schizophrenia [Unknown]
  - Death [Fatal]

NARRATIVE: CASE EVENT DATE: 20201221
